FAERS Safety Report 23062048 (Version 1)
Quarter: 2023Q4

REPORT INFORMATION
  Report Type: Report from Study
  Country: CA (occurrence: CA)
  Receive Date: 20231013
  Receipt Date: 20231013
  Transmission Date: 20240109
  Serious: Yes (Other)
  Sender: FDA-Public Use
  Company Number: None

PATIENT
  Age: 5 Year
  Sex: Female

DRUGS (10)
  1. METHOTREXATE [Suspect]
     Active Substance: METHOTREXATE
     Indication: Still^s disease
     Dosage: 1 EVERY 1 WEEKS
     Route: 058
  2. ACTEMRA [Suspect]
     Active Substance: TOCILIZUMAB
     Indication: Still^s disease
     Dosage: IN PRE-FILLED SYRINGE, 1 EVERY 2 WEEKS
     Route: 058
  3. ANAKINRA [Suspect]
     Active Substance: ANAKINRA
     Indication: Still^s disease
     Route: 065
  4. ATARAX [Concomitant]
     Active Substance: HYDROXYZINE HYDROCHLORIDE
  5. CALCIUM [Concomitant]
     Active Substance: CALCIUM
  6. FOLIC ACID [Concomitant]
     Active Substance: FOLIC ACID
  7. MELATONIN [Concomitant]
     Active Substance: MELATONIN
  8. PREDNISONE [Concomitant]
     Active Substance: PREDNISONE
     Dosage: 2 EVERY 1 DAYS
     Route: 048
  9. PREVACID [Concomitant]
     Active Substance: LANSOPRAZOLE
  10. ACTEMRA [Suspect]
     Active Substance: TOCILIZUMAB
     Indication: Still^s disease
     Dosage: 1 EVERY 2 WEEKS
     Route: 042

REACTIONS (5)
  - Still^s disease [Not Recovered/Not Resolved]
  - Toxicity to various agents [Not Recovered/Not Resolved]
  - Therapy non-responder [Not Recovered/Not Resolved]
  - Hepatic cytolysis [Not Recovered/Not Resolved]
  - Weight increased [Not Recovered/Not Resolved]
